FAERS Safety Report 7732102-6 (Version None)
Quarter: 2011Q3

REPORT INFORMATION
  Report Type: 
  Country: None (occurrence: None)
  Receive Date: 20110906
  Receipt Date: 20110802
  Transmission Date: 20111222
  Serious: No
  Sender: FDA-Public Use
  Company Number: US-AMGEN-USASP2011039025

PATIENT
  Age: 69 Year
  Sex: Female

DRUGS (4)
  1. VITAMINS                           /00067501/ [Concomitant]
  2. PROTEIN SUPPLEMENTS [Concomitant]
  3. PREMARIN [Concomitant]
  4. PROLIA [Suspect]
     Indication: OSTEOPOROSIS POSTMENOPAUSAL
     Dosage: UNK UNK, Q6MO
     Dates: start: 20101215, end: 20110801

REACTIONS (6)
  - HERPES ZOSTER [None]
  - FATIGUE [None]
  - RED BLOOD CELL COUNT DECREASED [None]
  - MALABSORPTION [None]
  - WHITE BLOOD CELL COUNT DECREASED [None]
  - TUBERCULOSIS [None]
